FAERS Safety Report 8109206-1 (Version None)
Quarter: 2012Q1

REPORT INFORMATION
  Report Type: 
  Country: None (occurrence: None)
  Receive Date: 20120202
  Receipt Date: 20120109
  Transmission Date: 20120608
  Serious: No
  Sender: FDA-Public Use
  Company Number: US-AMGEN-USASP2011069895

PATIENT
  Age: 35 Year
  Sex: Female

DRUGS (7)
  1. ENBREL [Suspect]
     Dosage: 50 MG, QWK
     Route: 058
     Dates: start: 20080501, end: 20101101
  2. FOLIC ACID [Concomitant]
     Dosage: UNK UNK, QD
     Route: 048
  3. SYNTHROID [Concomitant]
     Dosage: UNK UNK, QD
     Route: 048
  4. ENBREL [Suspect]
     Indication: RHEUMATOID ARTHRITIS
     Dosage: 50 MG, QWK
     Dates: start: 20020801
  5. ENBREL [Suspect]
     Dosage: 50 MG, QWK
     Route: 058
     Dates: start: 20110301
  6. PREDNISONE TAB [Concomitant]
     Dosage: 5 MG, QD
     Route: 048
  7. PRENATAL                           /00231801/ [Concomitant]
     Dosage: UNK UNK, QD
     Route: 048

REACTIONS (2)
  - VOMITING IN PREGNANCY [None]
  - INJECTION SITE PAIN [None]
